FAERS Safety Report 14026075 (Version 2)
Quarter: 2018Q4

REPORT INFORMATION
  Report Type: Spontaneous
  Country: GB (occurrence: GB)
  Receive Date: 20170929
  Receipt Date: 20181201
  Transmission Date: 20190204
  Serious: Yes (Other)
  Sender: FDA-Public Use
  Company Number: GB-ACCORD-059069

PATIENT
  Age: 92 Year
  Sex: Female
  Weight: 73 kg

DRUGS (8)
  1. CODEINE PHOSPHATE/PARACETAMOL [Concomitant]
     Dates: start: 20170410
  2. CLOPIDOGREL [Suspect]
     Active Substance: CLOPIDOGREL BISULFATE
     Indication: TRANSIENT ISCHAEMIC ATTACK
     Route: 048
     Dates: start: 201707, end: 20170811
  3. DOXAZOSIN [Concomitant]
     Active Substance: DOXAZOSIN\DOXAZOSIN MESYLATE
     Dates: start: 20170811
  4. ALLOPURINOL. [Concomitant]
     Active Substance: ALLOPURINOL
     Dates: start: 20170208
  5. RAMIPRIL. [Concomitant]
     Active Substance: RAMIPRIL
     Dates: start: 20170208
  6. DOXAZOSIN [Concomitant]
     Active Substance: DOXAZOSIN\DOXAZOSIN MESYLATE
     Dosage: ONE?2MG?AND?ONE?1MG?TABLET
     Dates: start: 20170531
  7. LACTULOSE. [Concomitant]
     Active Substance: LACTULOSE
     Dosage: 3.1-3.7G/5ML
     Dates: start: 20170208
  8. FUROSEMIDE. [Concomitant]
     Active Substance: FUROSEMIDE
     Dates: start: 20170208

REACTIONS (5)
  - Epistaxis [Recovered/Resolved]
  - Thrombocytopenia [Recovering/Resolving]
  - Rectal haemorrhage [Recovered/Resolved]
  - Gingival bleeding [Recovered/Resolved]
  - Oral contusion [Recovered/Resolved]

NARRATIVE: CASE EVENT DATE: 20170811
